FAERS Safety Report 9821938 (Version 3)
Quarter: 2014Q1

REPORT INFORMATION
  Report Type: Report from Study
  Country: CA (occurrence: CA)
  Receive Date: 20140116
  Receipt Date: 20140123
  Transmission Date: 20141002
  Serious: Yes (Hospitalization, Other)
  Sender: FDA-Public Use
  Company Number: CA-ABBVIE-14P-028-1187451-00

PATIENT
  Age: 52 Year
  Sex: Female

DRUGS (2)
  1. HUMIRA [Suspect]
     Indication: CROHN^S DISEASE
     Route: 058
     Dates: start: 20110114, end: 20131023
  2. HUMIRA [Suspect]
     Route: 058
     Dates: start: 2013

REACTIONS (7)
  - Blindness unilateral [Not Recovered/Not Resolved]
  - Keratitis bacterial [Not Recovered/Not Resolved]
  - Heart rate increased [Not Recovered/Not Resolved]
  - Hypertension [Recovering/Resolving]
  - Death of relative [Unknown]
  - Emotional distress [Unknown]
  - Suture rupture [Not Recovered/Not Resolved]
